FAERS Safety Report 15073975 (Version 1)
Quarter: 2018Q2

REPORT INFORMATION
  Report Type: Spontaneous
  Country: US (occurrence: US)
  Receive Date: 20180627
  Receipt Date: 20180627
  Transmission Date: 20180711
  Serious: Yes (Other)
  Sender: FDA-Public Use
  Company Number: US-NORTHSTAR HEALTHCARE HOLDINGS-US-2018NSR000112

PATIENT
  Age: 73 Year
  Sex: Female

DRUGS (1)
  1. PROPRANOLOL HYDROCHLORIDE. [Suspect]
     Active Substance: PROPRANOLOL HYDROCHLORIDE
     Indication: CARDIAC FAILURE
     Dosage: UNK

REACTIONS (2)
  - Bradycardia [Recovered/Resolved]
  - Pulseless electrical activity [Recovered/Resolved]
